FAERS Safety Report 11492069 (Version 1)
Quarter: 2015Q3

REPORT INFORMATION
  Report Type: Spontaneous
  Country: US (occurrence: None)
  Receive Date: 20150909
  Receipt Date: 20150909
  Transmission Date: 20151125
  Serious: Yes (Hospitalization, Other)
  Sender: FDA-Public Use
  Company Number: 2015HINLIT0728

PATIENT
  Age: 75 Year
  Sex: Female

DRUGS (8)
  1. LOW-DOSE ASPIRIN [Concomitant]
     Active Substance: ASPIRIN
  2. ATORVASTATIN [Concomitant]
     Active Substance: ATORVASTATIN
  3. FUROSEMIDE. [Concomitant]
     Active Substance: FUROSEMIDE
  4. CLONIDINE. [Concomitant]
     Active Substance: CLONIDINE
  5. HYDROCHLOROTHIAZIDE. [Concomitant]
     Active Substance: HYDROCHLOROTHIAZIDE
  6. HYDRALAZINE (HYDRALAZINE) UNKNOWN [Suspect]
     Active Substance: HYDRALAZINE HYDROCHLORIDE
     Indication: HYPERTENSION
  7. AMLODIPINE [Concomitant]
     Active Substance: AMLODIPINE BESYLATE
  8. CLOPIDOGREL [Concomitant]
     Active Substance: CLOPIDOGREL BISULFATE

REACTIONS (11)
  - Blood bilirubin increased [None]
  - International normalised ratio increased [None]
  - Hepatitis [None]
  - Aspartate aminotransferase increased [None]
  - Epistaxis [None]
  - Jaundice [None]
  - Hepatic necrosis [None]
  - Drug-induced liver injury [None]
  - Alanine aminotransferase increased [None]
  - Blood alkaline phosphatase increased [None]
  - Prothrombin time prolonged [None]
